FAERS Safety Report 7864913-0 (Version None)
Quarter: 2011Q4

REPORT INFORMATION
  Report Type: 
  Country: None (occurrence: None)
  Receive Date: 20111028
  Receipt Date: 20100917
  Transmission Date: 20120403
  Serious: No
  Sender: FDA-Public Use
  Company Number: US-GLAXOSMITHKLINE-A0881680A

PATIENT
  Age: 59 Year
  Sex: Male
  Weight: 107.3 kg

DRUGS (3)
  1. PROVENTIL-HFA [Concomitant]
  2. ADVAIR DISKUS 100/50 [Suspect]
     Indication: ASTHMA
     Dosage: 1PUFF TWICE PER DAY
     Route: 055
     Dates: start: 20020101, end: 20100101
  3. RHINOCORT [Concomitant]

REACTIONS (7)
  - ERYTHEMA [None]
  - URTICARIA [None]
  - COUGH [None]
  - RASH [None]
  - PHOTOSENSITIVITY REACTION [None]
  - ILL-DEFINED DISORDER [None]
  - PRURITUS [None]
